FAERS Safety Report 8793080 (Version 1)
Quarter: 2012Q4

REPORT INFORMATION
  Report Type: 
  Country: FR (occurrence: FR)
  Receive Date: 20120918
  Receipt Date: 20120918
  Transmission Date: 20130627
  Serious: Yes (Hospitalization)
  Sender: FDA-Public Use
  Company Number: FR-ROCHE-1122175

PATIENT
  Age: 61 Year
  Sex: Male

DRUGS (5)
  1. PEGASYS [Suspect]
     Indication: HEPATITIS C
     Dosage: 180mcg
     Route: 058
     Dates: start: 20120507, end: 20120721
  2. COPEGUS [Suspect]
     Indication: HEPATITIS C
     Dosage: 1200mg
     Route: 048
     Dates: start: 20120507, end: 20120721
  3. INCIVO [Suspect]
     Indication: HEPATITIS C
     Dosage: 3757mg
     Route: 065
     Dates: start: 20120507, end: 20120721
  4. NEORECORMON [Concomitant]
     Indication: ANAEMIA
     Route: 058
     Dates: start: 20120705, end: 20120721
  5. LEVOTHYROX [Concomitant]
     Indication: HYPOTHYROIDISM
     Route: 048
     Dates: start: 2007

REACTIONS (5)
  - Dermatitis exfoliative [Recovered/Resolved]
  - Eosinophilia [Recovered/Resolved]
  - Pyrexia [Recovered/Resolved]
  - Drug reaction with eosinophilia and systemic symptoms [Recovered/Resolved]
  - Rash papular [Recovered/Resolved]
